FAERS Safety Report 5501795-6 (Version None)
Quarter: 2007Q4

REPORT INFORMATION
  Report Type: 
  Country: None (occurrence: None)
  Receive Date: 20071030
  Receipt Date: 20071024
  Transmission Date: 20080405
  Serious: Yes (Other)
  Sender: FDA-Public Use
  Company Number: JP-BAYER-200716155GDS

PATIENT
  Age: 74 Year
  Sex: Male

DRUGS (2)
  1. ASPIRIN [Suspect]
     Indication: DRUG USE FOR UNKNOWN INDICATION
     Route: 065
  2. HEPARIN [Suspect]
     Indication: CEREBRAL INFARCTION

REACTIONS (6)
  - CAROTID ARTERY STENOSIS [None]
  - CEREBRAL HAEMORRHAGE [None]
  - CEREBRAL INFARCTION [None]
  - HAEMORRHAGIC CEREBRAL INFARCTION [None]
  - MONOPLEGIA [None]
  - TRANSIENT ISCHAEMIC ATTACK [None]
